FAERS Safety Report 25472864 (Version 4)
Quarter: 2025Q3

REPORT INFORMATION
  Report Type: Spontaneous
  Country: EU (occurrence: EU)
  Receive Date: 20250624
  Receipt Date: 20250820
  Transmission Date: 20251021
  Serious: Yes (Death, Life-Threatening, Hospitalization, Other)
  Sender: ACCORD
  Company Number: EU-Accord-491092

PATIENT
  Age: 66 Year
  Sex: Male
  Weight: 80 kg

DRUGS (4)
  1. CISPLATIN [Suspect]
     Active Substance: CISPLATIN
     Indication: Oropharyngeal squamous cell carcinoma
     Route: 042
     Dates: start: 20250512
  2. DOCETAXEL [Suspect]
     Active Substance: DOCETAXEL
     Indication: Oropharyngeal squamous cell carcinoma
     Route: 042
     Dates: start: 20250512
  3. CETUXIMAB [Suspect]
     Active Substance: CETUXIMAB
     Indication: Oropharyngeal squamous cell carcinoma
     Route: 042
     Dates: start: 20250512
  4. FILGRASTIM [Concomitant]
     Active Substance: FILGRASTIM
     Dates: start: 20250513, end: 20250516

REACTIONS (7)
  - Septic shock [Fatal]
  - Febrile neutropenia [Fatal]
  - Asthenia [Unknown]
  - Decreased appetite [Unknown]
  - Rash [Unknown]
  - Pyrexia [Unknown]
  - Weight decreased [Unknown]

NARRATIVE: CASE EVENT DATE: 20250519
